FAERS Safety Report 13629471 (Version 1)
Quarter: 2017Q2

REPORT INFORMATION
  Report Type: Spontaneous
  Country: US (occurrence: US)
  Receive Date: 20170531
  Receipt Date: 20170531
  Transmission Date: 20170830
  Serious: No
  Sender: FDA-Public Use
  Company Number: US-ASTELLAS-1196893

PATIENT
  Sex: Female
  Weight: 46.72 kg

DRUGS (14)
  1. TARCEVA [Suspect]
     Active Substance: ERLOTINIB HYDROCHLORIDE
     Indication: ADENOCARCINOMA GASTRIC
     Route: 048
     Dates: start: 20120912, end: 20130206
  2. OXYCONTIN [Concomitant]
     Active Substance: OXYCODONE HYDROCHLORIDE
     Route: 065
  3. MEGESTROL [Concomitant]
     Active Substance: MEGESTROL
     Dosage: FORM STRENGTH: 40 MG/ML
     Route: 065
  4. SYMBICORT [Concomitant]
     Active Substance: BUDESONIDE\FORMOTEROL FUMARATE DIHYDRATE
     Dosage: FORM STRENGTH:  0.16 MG/INH; 0.0045 MG/INH, 2 PUFFS
     Route: 065
  5. OXYCONTIN [Concomitant]
     Active Substance: OXYCODONE HYDROCHLORIDE
     Route: 065
  6. CYMBALTA [Concomitant]
     Active Substance: DULOXETINE HYDROCHLORIDE
     Route: 065
  7. DIAZEPAM. [Concomitant]
     Active Substance: DIAZEPAM
     Route: 065
  8. FENTANYL. [Concomitant]
     Active Substance: FENTANYL
     Dosage: FORM STENGTH: 100 MCG/HR, APPLY 2 PATCHES AT AFTERNOON EVERY 48 HR.
     Route: 065
  9. MARINOL [Concomitant]
     Active Substance: DRONABINOL
     Indication: NAUSEA
     Route: 065
  10. SPIRIVA [Concomitant]
     Active Substance: TIOTROPIUM BROMIDE MONOHYDRATE
     Dosage: DOSE: 1 PUFFS
     Route: 065
  11. ZOFRAN [Concomitant]
     Active Substance: ONDANSETRON HYDROCHLORIDE
     Indication: PAIN
     Route: 065
  12. PROVENTIL [Concomitant]
     Active Substance: ALBUTEROL
     Dosage: FORM STRENGTH: 0.09 MG/ACTUATION, DOSE: 2 PUFFS
     Route: 065
  13. FENTANYL CITRATE. [Concomitant]
     Active Substance: FENTANYL CITRATE
     Indication: PAIN
     Route: 065
  14. PREVACID [Concomitant]
     Active Substance: LANSOPRAZOLE
     Dosage: FORM STRENTH: 3 MG/ML,
     Route: 065

REACTIONS (1)
  - Disease progression [Unknown]
